FAERS Safety Report 12680943 (Version 1)
Quarter: 2016Q3

REPORT INFORMATION
  Report Type: Spontaneous
  Country: US (occurrence: US)
  Receive Date: 20160824
  Receipt Date: 20160824
  Transmission Date: 20161109
  Serious: No
  Sender: FDA-Public Use
  Company Number: US-PFIZER INC-2016394747

PATIENT
  Age: 57 Year
  Sex: Female

DRUGS (5)
  1. FROVA [Suspect]
     Active Substance: FROVATRIPTAN SUCCINATE
     Indication: MIGRAINE
     Dosage: UNKNOWN
  2. RELPAX [Suspect]
     Active Substance: ELETRIPTAN HYDROBROMIDE
     Indication: MIGRAINE
     Dosage: UNKNOWN
  3. AMERGE [Suspect]
     Active Substance: NARATRIPTAN HYDROCHLORIDE
     Indication: MIGRAINE
     Dosage: UNKNOWN
  4. MAXALT [Suspect]
     Active Substance: RIZATRIPTAN BENZOATE
     Indication: MIGRAINE
     Dosage: UNKNOWN
  5. ZOMIG [Suspect]
     Active Substance: ZOLMITRIPTAN
     Indication: MIGRAINE
     Dosage: UNKNOWN

REACTIONS (16)
  - Mobility decreased [Unknown]
  - Pain [Unknown]
  - Crying [Unknown]
  - Dehydration [Unknown]
  - Immune system disorder [Unknown]
  - Impaired driving ability [Unknown]
  - Feeling abnormal [Unknown]
  - Headache [Unknown]
  - Allergic sinusitis [Unknown]
  - Parosmia [Unknown]
  - Dizziness [Unknown]
  - Swelling [Unknown]
  - Muscle tightness [Unknown]
  - Facial pain [Unknown]
  - Malaise [Unknown]
  - Drug ineffective [Unknown]
